FAERS Safety Report 11898723 (Version 2)
Quarter: 2018Q4

REPORT INFORMATION
  Report Type: Spontaneous
  Country: FR (occurrence: FR)
  Receive Date: 20160108
  Receipt Date: 20181109
  Transmission Date: 20190204
  Serious: Yes (Hospitalization, Other)
  Sender: FDA-Public Use
  Company Number: FR-BIOVITRUM-2016FR0002

PATIENT
  Sex: Male
  Weight: 2.9 kg

DRUGS (8)
  1. COLCHICINE. [Concomitant]
     Active Substance: COLCHICINE
     Route: 064
  2. CIMZIA [Concomitant]
     Active Substance: CERTOLIZUMAB PEGOL
     Route: 064
  3. TOCILIZUMAB. [Concomitant]
     Active Substance: TOCILIZUMAB
     Route: 064
  4. KINERET [Suspect]
     Active Substance: ANAKINRA
     Route: 064
  5. CORTICOSTEROID [Concomitant]
     Active Substance: CORTICOSTEROID NOS
     Route: 064
     Dates: end: 20151117
  6. PREDNISONE. [Concomitant]
     Active Substance: PREDNISONE
     Route: 064
  7. CLAIRYG [Concomitant]
     Active Substance: HUMAN IMMUNOGLOBULIN G
  8. PERFALGAN [Concomitant]
     Active Substance: ACETAMINOPHEN

REACTIONS (8)
  - Bradycardia foetal [Recovered/Resolved]
  - Congenital herpes simplex infection [Unknown]
  - Hypocalcaemia [Recovered/Resolved]
  - Foetal exposure during pregnancy [Unknown]
  - Pyrexia [Recovering/Resolving]
  - Hepatosplenomegaly [Recovering/Resolving]
  - Neonatal gastrointestinal disorder [Recovering/Resolving]
  - Thrombocytopenia [Recovering/Resolving]
